FAERS Safety Report 5887575-0 (Version None)
Quarter: 2008Q3

REPORT INFORMATION
  Report Type: 
  Country: None (occurrence: None)
  Receive Date: 20080918
  Receipt Date: 20080912
  Transmission Date: 20090109
  Serious: Yes (Hospitalization)
  Sender: FDA-Public Use
  Company Number: PHHY2008CH20978

PATIENT
  Age: 66 Year
  Sex: Female

DRUGS (11)
  1. TEGRETOL [Suspect]
     Indication: TRIGEMINAL NERVE DISORDER
     Dosage: 400 MG
  2. ISOPTIN [Interacting]
     Indication: TRIGEMINAL NERVE DISORDER
     Dosage: UNK
     Dates: end: 20080731
  3. METOPROLOL TARTRATE [Concomitant]
     Dosage: UNK
  4. CALCIMAGON-D3 [Concomitant]
     Dosage: UNK
  5. DAFALGAN [Concomitant]
     Dosage: UNK
  6. MADOPAR [Concomitant]
     Dosage: UNK
  7. MOVICOL [Concomitant]
     Dosage: UNK
  8. NEXIUM [Concomitant]
     Dosage: UNK
  9. PREDNISONE [Concomitant]
     Dosage: UNK
  10. TOPIRAMATE [Concomitant]
  11. AMITRIPTYLINE HCL [Concomitant]

REACTIONS (11)
  - ANTICONVULSANT DRUG LEVEL INCREASED [None]
  - COORDINATION ABNORMAL [None]
  - DRUG INTERACTION [None]
  - FALL [None]
  - HYPOKALAEMIA [None]
  - HYPONATRAEMIA [None]
  - NAUSEA [None]
  - SEDATION [None]
  - SOMNOLENCE [None]
  - SPEECH DISORDER [None]
  - SPINAL FRACTURE [None]
